FAERS Safety Report 4614925-5 (Version None)
Quarter: 2005Q1

REPORT INFORMATION
  Report Type: 
  Country: None (occurrence: None)
  Receive Date: 20050322
  Receipt Date: 20000120
  Transmission Date: 20050727
  Serious: Yes (Other)
  Sender: FDA-Public Use
  Company Number: DE-ROCHE-226188

PATIENT
  Sex: Male

DRUGS (3)
  1. VALIUM [Suspect]
     Route: 048
     Dates: start: 19640615
  2. LIBRIUM [Suspect]
     Indication: DRUG USE FOR UNKNOWN INDICATION
     Route: 065
  3. LAROXYL [Concomitant]
     Route: 065

REACTIONS (6)
  - DELIRIUM [None]
  - DRUG DEPENDENCE [None]
  - DRUG WITHDRAWAL SYNDROME [None]
  - PERSONALITY CHANGE [None]
  - RENAL SURGERY [None]
  - SURGERY [None]
